APPROVED DRUG PRODUCT: ERYTHROMYCIN
Active Ingredient: ERYTHROMYCIN LACTOBIONATE
Strength: EQ 500MG BASE/VIAL
Dosage Form/Route: INJECTABLE;INJECTION
Application: A062563 | Product #001
Applicant: ELKINS SINN DIV AH ROBINS CO INC
Approved: Mar 28, 1985 | RLD: No | RS: No | Type: DISCN